FAERS Safety Report 6594608-5 (Version None)
Quarter: 2010Q1

REPORT INFORMATION
  Report Type: 
  Country: None (occurrence: None)
  Receive Date: 20100222
  Receipt Date: 20090310
  Transmission Date: 20100710
  Serious: No
  Sender: FDA-Public Use
  Company Number: US-BRISTOL-MYERS SQUIBB COMPANY-14552137

PATIENT

DRUGS (2)
  1. TAXOL [Suspect]
  2. LYRICA [Suspect]
     Dosage: CAPSULE; HARD

REACTIONS (1)
  - PAIN IN EXTREMITY [None]
